FAERS Safety Report 9661573 (Version 2)
Quarter: 2013Q4

REPORT INFORMATION
  Report Type: Spontaneous
  Country: US (occurrence: US)
  Receive Date: 20131031
  Receipt Date: 20131031
  Transmission Date: 20140711
  Serious: No
  Sender: FDA-Public Use
  Company Number: US-PURDUE-USA-2010-0054504

PATIENT
  Age: 26 Year
  Sex: Male

DRUGS (3)
  1. OXYCONTIN (NDA 22-272) [Suspect]
     Indication: CANCER PAIN
     Dosage: 90 MG
     Route: 048
     Dates: start: 20100901
  2. OXYCONTIN (NDA 22-272) [Suspect]
     Dosage: 60 MG- NOON
     Route: 048
     Dates: start: 20100901
  3. OXYCONTIN (NDA 22-272) [Suspect]
     Dosage: 60 MG, NOCTE
     Route: 048
     Dates: start: 20100901

REACTIONS (3)
  - Medication residue present [Recovered/Resolved]
  - Inadequate analgesia [Unknown]
  - Drug effect delayed [Unknown]
